FAERS Safety Report 9820273 (Version 2)
Quarter: 2014Q1

REPORT INFORMATION
  Report Type: Report from Study
  Country: US (occurrence: US)
  Receive Date: 20140116
  Receipt Date: 20140116
  Transmission Date: 20141002
  Serious: Yes (Other)
  Sender: FDA-Public Use
  Company Number: US-ABBVIE-11P-163-0719695-01

PATIENT
  Age: 36 Year
  Sex: Female
  Weight: 68.1 kg

DRUGS (9)
  1. HUMIRA [Suspect]
     Indication: CROHN^S DISEASE
     Dosage: BASELINE
     Route: 058
     Dates: start: 20080809, end: 20080809
  2. HUMIRA [Suspect]
     Route: 058
  3. HUMIRA [Suspect]
     Route: 058
     Dates: end: 20101101
  4. ZYRTEC [Concomitant]
     Indication: SEASONAL ALLERGY
     Dates: start: 20090227
  5. MULTIVITAMINES AND MINERALS [Concomitant]
     Indication: ROUTINE HEALTH MAINTENANCE
     Dates: start: 20091109, end: 20101217
  6. SILVA SULFADENE CREAM [Concomitant]
     Indication: ANAL SKIN TAGS
     Route: 061
     Dates: start: 20090410
  7. P-NAT VIT/IRON FUM + BIS-GLY/FA VITAMIN [Concomitant]
     Indication: PREGNANCY
     Dates: start: 20101111
  8. LOTMAX OPTHALMIC GTTS [Concomitant]
     Indication: CORNEAL DISORDER
     Dosage: 1 GTT
     Route: 047
     Dates: start: 20091206, end: 20101220
  9. MESALAZINE [Concomitant]
     Indication: CROHN^S DISEASE
     Dates: start: 20080520

REACTIONS (1)
  - Corneal disorder [Recovered/Resolved]
